FAERS Safety Report 12290187 (Version 1)
Quarter: 2016Q2

REPORT INFORMATION
  Report Type: Spontaneous
  Country: CN (occurrence: CN)
  Receive Date: 20160421
  Receipt Date: 20160421
  Transmission Date: 20160815
  Serious: Yes (Other)
  Sender: FDA-Public Use
  Company Number: CN-PFIZER INC-2016223998

PATIENT
  Age: 3 Year
  Sex: Female
  Weight: 14 kg

DRUGS (2)
  1. CEFODIZIME SODIUM [Suspect]
     Active Substance: CEFODIZIME SODIUM
     Indication: BRONCHITIS
     Dosage: 1.3G ONCE A DAY, INTRAVENOUS DRIP OF (4: 1) GLUCOSE AND SODIUM CHLORIDE INJECTION 100 ML
     Route: 041
     Dates: start: 20151111, end: 20151111
  2. SOLU-MEDROL [Suspect]
     Active Substance: METHYLPREDNISOLONE SODIUM SUCCINATE
     Indication: BRONCHITIS
     Dosage: 30MG ONCE A DAY, INTRAVENOUS DRIP OF (4: 1) GLUCOSE AND SODIUM CHLORIDE INJECTION 50 ML
     Route: 041
     Dates: start: 20151111, end: 20151111

REACTIONS (2)
  - Dyspnoea [Recovered/Resolved]
  - Rash erythematous [Recovered/Resolved]

NARRATIVE: CASE EVENT DATE: 20151111
